FAERS Safety Report 13754158 (Version 1)
Quarter: 2017Q3

REPORT INFORMATION
  Report Type: Spontaneous
  Country: US (occurrence: US)
  Receive Date: 20170714
  Receipt Date: 20170714
  Transmission Date: 20171127
  Serious: Yes (Life-Threatening, Hospitalization)
  Sender: FDA-Public Use
  Company Number: None

PATIENT
  Age: 52 Year
  Sex: Male
  Weight: 83.6 kg

DRUGS (1)
  1. NICOTINE POLACRILEX [Suspect]
     Active Substance: NICOTINE
     Indication: SMOKING CESSATION THERAPY
     Route: 048
     Dates: start: 20170209, end: 20170210

REACTIONS (10)
  - Dyspnoea [None]
  - Anxiety [None]
  - Rash [None]
  - Livedo reticularis [None]
  - Blood pH decreased [None]
  - Tachycardia [None]
  - PO2 increased [None]
  - Tremor [None]
  - Chest discomfort [None]
  - Respiratory depression [None]

NARRATIVE: CASE EVENT DATE: 20170209
